FAERS Safety Report 22167777 (Version 1)
Quarter: 2023Q2

REPORT INFORMATION
  Report Type: Spontaneous
  Country: ES (occurrence: ES)
  Receive Date: 20230403
  Receipt Date: 20230403
  Transmission Date: 20230722
  Serious: Yes (Hospitalization)
  Sender: FDA-Public Use
  Company Number: None

PATIENT
  Age: 61 Year
  Sex: Male

DRUGS (1)
  1. EMTRICITABINE\TENOFOVIR DISOPROXIL [Suspect]
     Active Substance: EMTRICITABINE\TENOFOVIR DISOPROXIL
     Indication: HIV infection
     Dosage: 1 DOSAGE FORMS DAILY; 200 MG/245 MG FILM-COATED TABLETS EFG, 30 TABLETS (UNIT DOSES) (OPA/AL/PE BLIS
     Route: 065
     Dates: start: 20191107, end: 20211202

REACTIONS (2)
  - Peripheral sensory neuropathy [Recovered/Resolved]
  - Fanconi syndrome acquired [Recovered/Resolved]

NARRATIVE: CASE EVENT DATE: 20200117
